FAERS Safety Report 4319712-3 (Version None)
Quarter: 2004Q1

REPORT INFORMATION
  Report Type: 
  Country: None (occurrence: None)
  Receive Date: 20040316
  Receipt Date: 20040301
  Transmission Date: 20041129
  Serious: Yes (Hospitalization)
  Sender: FDA-Public Use
  Company Number: 190815

PATIENT
  Age: 72 Year
  Sex: Female
  Weight: 54.4316 kg

DRUGS (4)
  1. AVONEX [Suspect]
     Indication: MULTIPLE SCLEROSIS
     Dosage: 30 MCG IM QW
     Route: 030
     Dates: start: 19980101, end: 20031201
  2. LANOXIN [Concomitant]
  3. CELEBREX [Concomitant]
  4. MULTI-VITAMINS [Concomitant]

REACTIONS (8)
  - BLOOD SODIUM DECREASED [None]
  - CONVULSION [None]
  - FALL [None]
  - HAEMORRHAGE INTRACRANIAL [None]
  - HEMIPARESIS [None]
  - MUSCULAR WEAKNESS [None]
  - SUBDURAL HAEMATOMA [None]
  - URINARY TRACT INFECTION [None]
